FAERS Safety Report 14794584 (Version 3)
Quarter: 2018Q3

REPORT INFORMATION
  Report Type: Spontaneous
  Country: US (occurrence: US)
  Receive Date: 20180423
  Receipt Date: 20180704
  Transmission Date: 20181010
  Serious: No
  Sender: FDA-Public Use
  Company Number: US-PFIZER INC-2018161963

PATIENT
  Age: 60 Year
  Sex: Female
  Weight: 59 kg

DRUGS (11)
  1. VENLAFAXINE [Concomitant]
     Active Substance: VENLAFAXINE HYDROCHLORIDE
     Indication: DEPRESSION
     Dosage: 150 MG, 1X/DAY
     Route: 048
     Dates: start: 2017
  2. FOLIC ACID. [Concomitant]
     Active Substance: FOLIC ACID
     Indication: HAIR DISORDER
     Dosage: 1 MG, 1X/DAY
     Route: 048
  3. ALPRAZOLAM. [Concomitant]
     Active Substance: ALPRAZOLAM
     Indication: ANXIETY
     Dosage: 0.5 MG, 2X/DAY
     Route: 048
  4. HYDROXYCHLOROQUINE [Concomitant]
     Active Substance: HYDROXYCHLOROQUINE
     Indication: RHEUMATOID ARTHRITIS
     Dosage: 200 MG, ALTERNATE DAY (1 TABLET BY MOUTH EVERY OTHER DAY , 2 TABLETS BY MOUTH ALTERNATING IN BETWEEN
     Route: 048
     Dates: start: 2018
  5. BIOTIN [Concomitant]
     Active Substance: BIOTIN
     Indication: ALOPECIA
     Dosage: 5000 UG, 1X/DAY
     Route: 048
  6. XELJANZ [Suspect]
     Active Substance: TOFACITINIB CITRATE
     Indication: RHEUMATOID ARTHRITIS
     Dosage: 5 MG, 4X/DAY (TWICE IN THE MORNING AND TWICE IN THE EVENING)
  7. METHOTREXATE SODIUM. [Suspect]
     Active Substance: METHOTREXATE SODIUM
     Indication: RHEUMATOID ARTHRITIS
     Dosage: 2.5 MG, WEEKLY (1 TABLET BY MOUTH)
     Route: 048
  8. HYDROCODONE [Concomitant]
     Active Substance: HYDROCODONE
     Indication: PAIN
     Dosage: UNK, AS NEEDED
     Route: 048
     Dates: start: 2017
  9. MILK THISTLE [Concomitant]
     Active Substance: DIETARY SUPPLEMENT\HERBALS\MILK THISTLE
     Indication: LIVER DISORDER
     Dosage: 1000 UG, 1X/DAY (1 CAPSULE BY MOUTH ONCE A DAY)
     Route: 048
  10. VITAMIN B12 [Concomitant]
     Active Substance: CYANOCOBALAMIN
     Indication: BLOOD TEST ABNORMAL
     Dosage: 1000 UG, UNK (THREE TIMES A WEEK)
     Route: 048
  11. BAYER ASPIRIN [Concomitant]
     Active Substance: ASPIRIN
     Indication: CARDIAC DISORDER
     Dosage: 81 MG, 1X/DAY
     Route: 048

REACTIONS (2)
  - Red blood cell count decreased [Unknown]
  - Blood urine present [Unknown]
